FAERS Safety Report 5963287-X (Version None)
Quarter: 2008Q4

REPORT INFORMATION
  Report Type: 
  Country: None (occurrence: None)
  Receive Date: 20081124
  Receipt Date: 20081118
  Transmission Date: 20090506
  Serious: Yes (Hospitalization, Disabling)
  Sender: FDA-Public Use
  Company Number: US-ELI_LILLY_AND_COMPANY-US200811004624

PATIENT
  Sex: Male

DRUGS (4)
  1. HUMULIN 50/50 [Suspect]
     Dates: start: 20010101, end: 20050101
  2. HUMULIN 70/30 [Suspect]
     Dates: start: 20010101
  3. HUMULIN R [Suspect]
     Dates: start: 20050101
  4. NOVOLOG MIX 70/30 [Concomitant]
     Dates: start: 20081101

REACTIONS (4)
  - BLISTER INFECTED [None]
  - BLOOD GLUCOSE INCREASED [None]
  - GAIT DISTURBANCE [None]
  - POOR PERIPHERAL CIRCULATION [None]
